FAERS Safety Report 21651463 (Version 1)
Quarter: 2022Q4

REPORT INFORMATION
  Report Type: Spontaneous
  Country: US (occurrence: US)
  Receive Date: 20221128
  Receipt Date: 20221128
  Transmission Date: 20230112
  Serious: Yes (Hospitalization, Other)
  Sender: FDA-Public Use
  Company Number: US-MYLANLABS-2021M1025264

PATIENT
  Age: 69 Year
  Sex: Male

DRUGS (6)
  1. FLUDARABINE [Suspect]
     Active Substance: FLUDARABINE PHOSPHATE
     Indication: Bone marrow conditioning regimen
     Dosage: UNK
     Route: 065
  2. DEXAMETHASONE [Suspect]
     Active Substance: DEXAMETHASONE
     Indication: Neurotoxicity
     Dosage: 10 MILLIGRAM, Q6H RECEIVED..
     Route: 065
  3. VALGANCICLOVIR [Suspect]
     Active Substance: VALGANCICLOVIR
     Indication: Human herpesvirus 6 encephalitis
     Dosage: 900 MILLIGRAM, BID
     Route: 048
  4. CYCLOPHOSPHAMIDE [Suspect]
     Active Substance: CYCLOPHOSPHAMIDE
     Indication: Bone marrow conditioning regimen
     Dosage: UNK
     Route: 065
  5. TOCILIZUMAB [Suspect]
     Active Substance: TOCILIZUMAB
     Indication: Cytokine release syndrome
     Dosage: 560 MILLIGRAM, RECEIVED...
     Route: 065
  6. GANCICLOVIR [Suspect]
     Active Substance: GANCICLOVIR
     Indication: Human herpesvirus 6 encephalitis
     Dosage: 5 MILLIGRAM/KILOGRAM, BID
     Route: 065

REACTIONS (8)
  - Human herpesvirus 6 encephalitis [Recovering/Resolving]
  - Mental status changes [Recovering/Resolving]
  - Speech disorder [Recovering/Resolving]
  - Nervous system disorder [Recovering/Resolving]
  - Confabulation [Recovering/Resolving]
  - Confusional state [Recovering/Resolving]
  - Memory impairment [Unknown]
  - Off label use [Unknown]
